FAERS Safety Report 6023651-X (Version None)
Quarter: 2008Q4

REPORT INFORMATION
  Report Type: 
  Country: None (occurrence: None)
  Receive Date: 20081229
  Receipt Date: 20081229
  Transmission Date: 20090506
  Serious: No
  Sender: FDA-Public Use
  Company Number: None

PATIENT
  Sex: Female
  Weight: 77.1115 kg

DRUGS (2)
  1. MIRENA [Suspect]
     Indication: CONTRACEPTION
     Dosage: INTRACERVICAL
     Route: 019
     Dates: start: 20081006, end: 20081226
  2. MIRENA [Suspect]
     Indication: CONTRACEPTION
     Dosage: INTRACERVICAL
     Route: 019
     Dates: start: 20081226, end: 20081226

REACTIONS (4)
  - CONTRACEPTIVE DEVICE COMPLICATION [None]
  - FUNGAL INFECTION [None]
  - HYPERSENSITIVITY [None]
  - URINARY TRACT INFECTION [None]
